FAERS Safety Report 23247296 (Version 2)
Quarter: 2023Q4

REPORT INFORMATION
  Report Type: Report from Study
  Country: CN (occurrence: None)
  Receive Date: 20231130
  Receipt Date: 20231205
  Transmission Date: 20240109
  Serious: Yes (Hospitalization)
  Sender: FDA-Public Use
  Company Number: CN-ROCHE-3465650

PATIENT
  Age: 69 Year
  Sex: Male
  Weight: 62 kg

DRUGS (9)
  1. ATEZOLIZUMAB [Suspect]
     Active Substance: ATEZOLIZUMAB
     Indication: Hepatocellular carcinoma
     Dosage: EVERY 3 WEEKS (21 PLUS MINUS 3 DAYS)
     Route: 041
     Dates: start: 20230704, end: 20231102
  2. BEVACIZUMAB [Suspect]
     Active Substance: BEVACIZUMAB
     Indication: Hepatocellular carcinoma
     Dosage: EVERY 3 WEEKS (21 PLUS MINUS 3 DAYS)
     Route: 041
     Dates: start: 20230704, end: 20231102
  3. EPIRUBICIN [Suspect]
     Active Substance: EPIRUBICIN
     Indication: Hepatocellular carcinoma
     Route: 065
  4. HYDROCHLOROTHIAZIDE\IRBESARTAN [Concomitant]
     Active Substance: HYDROCHLOROTHIAZIDE\IRBESARTAN
     Dosage: TOTAL DAILY DOSE: 162.5MG
     Dates: start: 20230531
  5. TENOFOVIR AMIBUFENAMIDE [Concomitant]
     Active Substance: TENOFOVIR AMIBUFENAMIDE
     Dosage: TOTAL DAILY DOSE: 25MG
     Dates: start: 20230601
  6. ATORVASTATIN CALCIUM [Concomitant]
     Active Substance: ATORVASTATIN CALCIUM
     Dosage: TOTAL DAILY DOSE: 20MG
     Dates: start: 20230613
  7. DIHYDROXYALUMINUM AMINOACETATE [Concomitant]
     Active Substance: DIHYDROXYALUMINUM AMINOACETATE
     Dosage: TOTAL DAILY DOSE: 114MG
     Dates: start: 20230703
  8. MAGNESIUM CARBONATE, HEAVY [Concomitant]
     Dosage: TOTAL DAILY DOSE: 114MG
     Dates: start: 20230703
  9. ASPIRIN [Concomitant]
     Active Substance: ASPIRIN
     Dosage: TOTAL DAILY DOSE: 114MG
     Dates: start: 20230703

REACTIONS (1)
  - Inguinal hernia [Recovered/Resolved]

NARRATIVE: CASE EVENT DATE: 20230811
